FAERS Safety Report 5662910-7 (Version None)
Quarter: 2008Q1

REPORT INFORMATION
  Report Type: 
  Country: None (occurrence: None)
  Receive Date: 20080307
  Receipt Date: 20080226
  Transmission Date: 20080703
  Serious: Yes (Hospitalization)
  Sender: FDA-Public Use
  Company Number: 231993J08USA

PATIENT
  Age: 42 Year
  Sex: Female

DRUGS (2)
  1. REBIF [Suspect]
     Indication: MULTIPLE SCLEROSIS
     Dosage: 44 MCG, 3 IN 1 WEEKS, SUBCUTANEOUS
     Route: 058
     Dates: start: 20060425
  2. CLONAZEPAM [Concomitant]

REACTIONS (10)
  - ANAEMIA [None]
  - DYSMENORRHOEA [None]
  - INFLUENZA LIKE ILLNESS [None]
  - INJECTION SITE IRRITATION [None]
  - INJECTION SITE NODULE [None]
  - MENORRHAGIA [None]
  - PAIN [None]
  - PAIN IN EXTREMITY [None]
  - PELVIC PAIN [None]
  - UTERINE LEIOMYOMA [None]
